FAERS Safety Report 13051653 (Version 1)
Quarter: 2016Q4

REPORT INFORMATION
  Report Type: Spontaneous
  Country: US (occurrence: US)
  Receive Date: 20161221
  Receipt Date: 20161221
  Transmission Date: 20170207
  Serious: No
  Sender: FDA-Public Use
  Company Number: US-BIOCOMPATIBLES UK LTD-BTG01084

PATIENT

DRUGS (1)
  1. VARITHENA [Suspect]
     Active Substance: POLIDOCANOL
     Indication: PRODUCT USED FOR UNKNOWN INDICATION
     Dosage: 12 ML, SINGLE
     Dates: start: 20160826, end: 20160826

REACTIONS (2)
  - Therapy change [Unknown]
  - Product quality issue [Unknown]

NARRATIVE: CASE EVENT DATE: 20160926
